FAERS Safety Report 10605666 (Version 13)
Quarter: 2017Q2

REPORT INFORMATION
  Report Type: Report from Study
  Country: CA (occurrence: CA)
  Receive Date: 20141125
  Receipt Date: 20170424
  Transmission Date: 20170829
  Serious: Yes (Life-Threatening, Hospitalization, Other)
  Sender: FDA-Public Use
  Company Number: CA-ROCHE-1394193

PATIENT
  Age: 65 Year
  Sex: Female
  Weight: 64.8 kg

DRUGS (11)
  1. METHYLPREDNISOLONE. [Concomitant]
     Active Substance: METHYLPREDNISOLONE
     Indication: PREMEDICATION
     Route: 042
     Dates: start: 20110404
  2. HYDROMORPHONE [Concomitant]
     Active Substance: HYDROMORPHONE
     Dosage: SLOW ACTING
     Route: 065
  3. PREDNISONE. [Concomitant]
     Active Substance: PREDNISONE
     Route: 065
  4. RITUXAN [Suspect]
     Active Substance: RITUXIMAB
     Indication: RHEUMATOID ARTHRITIS
     Dosage: LAST RITUXAN INFUSION: 10/DEC/2014 AND 23/DEC/2014 AND 25/NOV/2015
     Route: 042
     Dates: start: 20110404
  5. DIPHENHYDRAMINE. [Concomitant]
     Active Substance: DIPHENHYDRAMINE
     Indication: PREMEDICATION
     Route: 048
     Dates: start: 20120327
  6. HYDROMORPHONE [Concomitant]
     Active Substance: HYDROMORPHONE
     Dosage: SLOW ACTING
     Route: 065
  7. FISH OIL [Concomitant]
     Active Substance: FISH OIL
  8. BIOTIN [Concomitant]
     Active Substance: BIOTIN
  9. ACETAMINOPHEN. [Concomitant]
     Active Substance: ACETAMINOPHEN
     Route: 048
     Dates: start: 20120327
  10. ACETAMINOPHEN. [Concomitant]
     Active Substance: ACETAMINOPHEN
     Indication: PREMEDICATION
     Route: 048
     Dates: start: 20110404, end: 20111027
  11. SPIRIVA [Concomitant]
     Active Substance: TIOTROPIUM BROMIDE MONOHYDRATE

REACTIONS (14)
  - Pulmonary embolism [Unknown]
  - Hypotension [Unknown]
  - Pulmonary hypertension [Not Recovered/Not Resolved]
  - Pulmonary hypertension [Not Recovered/Not Resolved]
  - Pyrexia [Not Recovered/Not Resolved]
  - Arthralgia [Not Recovered/Not Resolved]
  - Oxygen saturation decreased [Unknown]
  - Intercepted medication error [Unknown]
  - Musculoskeletal stiffness [Not Recovered/Not Resolved]
  - Delirium [Not Recovered/Not Resolved]
  - Pain [Not Recovered/Not Resolved]
  - Drug dispensing error [Unknown]
  - Weight decreased [Unknown]
  - Weight decreased [Not Recovered/Not Resolved]

NARRATIVE: CASE EVENT DATE: 201308
